FAERS Safety Report 7687672-3 (Version None)
Quarter: 2011Q3

REPORT INFORMATION
  Report Type: 
  Country: None (occurrence: None)
  Receive Date: 20110817
  Receipt Date: 20110704
  Transmission Date: 20111222
  Serious: Yes (Death)
  Sender: FDA-Public Use
  Company Number: DE-UCBSA-038282

PATIENT
  Age: 50 Year
  Sex: Male

DRUGS (3)
  1. KEPPRA [Suspect]
     Dosage: DOSAGE: 7GR/DAY.
  2. CARBAMAZEPINE [Concomitant]
  3. TIAGABINE HCL [Concomitant]

REACTIONS (2)
  - STATUS EPILEPTICUS [None]
  - MULTI-ORGAN FAILURE [None]
